FAERS Safety Report 6937791-1 (Version None)
Quarter: 2010Q3

REPORT INFORMATION
  Report Type: 
  Country: None (occurrence: None)
  Receive Date: 20100820
  Receipt Date: 20100820
  Transmission Date: 20110219
  Serious: Yes (Hospitalization)
  Sender: FDA-Public Use
  Company Number: None

PATIENT
  Age: 52 Year
  Sex: Female
  Weight: 52.62 kg

DRUGS (6)
  1. PRAVASTATIN [Suspect]
     Indication: DYSLIPIDAEMIA
     Dosage: 40 MG PO QDAY
     Route: 048
     Dates: start: 20100805, end: 20100811
  2. IBUPROFEN [Concomitant]
  3. PANTOPRAZOLE [Concomitant]
  4. FENOFIBRATE [Concomitant]
  5. KALETRA [Concomitant]
  6. EMTRCITABINE [Concomitant]

REACTIONS (5)
  - CARDIAC DISORDER [None]
  - CHEST PAIN [None]
  - DYSPNOEA [None]
  - ELECTROCARDIOGRAM CHANGE [None]
  - MYALGIA [None]
